FAERS Safety Report 4503253-4 (Version None)
Quarter: 2004Q4

REPORT INFORMATION
  Report Type: 
  Country: None (occurrence: None)
  Receive Date: 20041112
  Receipt Date: 20041029
  Transmission Date: 20050328
  Serious: Yes (Other)
  Sender: FDA-Public Use
  Company Number: 2004086038

PATIENT
  Age: 48 Year
  Sex: 0

DRUGS (1)
  1. DOXYCYCLINE [Suspect]
     Indication: CHRONIC OBSTRUCTIVE AIRWAYS DISEASE
     Dosage: 100 MG, ORAL
     Route: 048
     Dates: start: 20041019, end: 20041021

REACTIONS (4)
  - CONGENITAL CYSTIC KIDNEY DISEASE [None]
  - DRUG HYPERSENSITIVITY [None]
  - DYSPHAGIA [None]
  - OESOPHAGEAL DISCOMFORT [None]
